FAERS Safety Report 19929686 (Version 3)
Quarter: 2021Q4

REPORT INFORMATION
  Report Type: Spontaneous
  Country: ES (occurrence: ES)
  Receive Date: 20211007
  Receipt Date: 20211028
  Transmission Date: 20220303
  Serious: Yes (Death, Other)
  Sender: FDA-Public Use
  Company Number: ES-ASTELLAS-2021US020634

PATIENT
  Age: 60 Year
  Sex: Female

DRUGS (5)
  1. AZACITIDINE [Suspect]
     Active Substance: AZACITIDINE
     Indication: Allogenic stem cell transplantation
     Dosage: UNKNOWN
     Route: 065
  2. GILTERITINIB [Suspect]
     Active Substance: GILTERITINIB
     Indication: Acute myeloid leukaemia
     Dosage: 120 MG, UNKNOWN FREQ.
     Route: 065
  3. GILTERITINIB [Suspect]
     Active Substance: GILTERITINIB
     Indication: FLT3 gene mutation
     Dosage: UNK
     Route: 065
  4. GILTERITINIB [Suspect]
     Active Substance: GILTERITINIB
     Dosage: 120 MILLIGRAM, QD
     Route: 065
  5. GILTERITINIB [Suspect]
     Active Substance: GILTERITINIB
     Dosage: 120 MILLIGRAM, QD
     Route: 065

REACTIONS (2)
  - Pneumonia fungal [Fatal]
  - Product use issue [Unknown]
